FAERS Safety Report 15678156 (Version 2)
Quarter: 2018Q4

REPORT INFORMATION
  Report Type: Spontaneous
  Country: US (occurrence: US)
  Receive Date: 20181201
  Receipt Date: 20181223
  Transmission Date: 20190205
  Serious: No
  Sender: FDA-Public Use
  Company Number: US-TEVA-2018-US-981470

PATIENT
  Age: 62 Year
  Sex: Female

DRUGS (5)
  1. CLONAZEPAM TABLET ACTAVIS [Suspect]
     Active Substance: CLONAZEPAM
     Indication: ANXIETY
  2. CLONAZEPAM TABLET ACTAVIS [Suspect]
     Active Substance: CLONAZEPAM
     Indication: PANIC DISORDER
     Dosage: 1 MG IN HALF AND TAKES A HALF IN THE MORNING AND THE OTHER HALF IN THE AFTERNOON/SHE REPORTS SHE TAK
     Dates: start: 2002
  3. CLONAZEPAM TABLET ACTAVIS [Suspect]
     Active Substance: CLONAZEPAM
     Indication: MUSCLE RELAXANT THERAPY
  4. CLONAZEPAM TABLET ACTAVIS [Suspect]
     Active Substance: CLONAZEPAM
     Indication: POST-TRAUMATIC STRESS DISORDER
  5. CLONAZEPAM TABLET ACTAVIS [Suspect]
     Active Substance: CLONAZEPAM
     Indication: SLEEP DEFICIT

REACTIONS (2)
  - Product substitution issue [Unknown]
  - Drug ineffective [Unknown]
